FAERS Safety Report 15324378 (Version 3)
Quarter: 2018Q4

REPORT INFORMATION
  Report Type: Spontaneous
  Country: US (occurrence: US)
  Receive Date: 20180828
  Receipt Date: 20181105
  Transmission Date: 20190204
  Serious: No
  Sender: FDA-Public Use
  Company Number: US-BRISTOL-MYERS SQUIBB COMPANY-BMS-2018-072568

PATIENT
  Sex: Male
  Weight: 129 kg

DRUGS (1)
  1. YERVOY [Suspect]
     Active Substance: IPILIMUMAB
     Indication: MALIGNANT MELANOMA
     Dosage: 1290 MG, Q3MO
     Route: 042
     Dates: start: 20161216

REACTIONS (5)
  - Prescribed overdose [Unknown]
  - Off label use [Unknown]
  - Arthralgia [Unknown]
  - Product use in unapproved indication [Unknown]
  - Weight decreased [Unknown]
